FAERS Safety Report 25289873 (Version 1)
Quarter: 2025Q2

REPORT INFORMATION
  Report Type: Spontaneous
  Country: CN (occurrence: CN)
  Receive Date: 20250509
  Receipt Date: 20250509
  Transmission Date: 20250716
  Serious: Yes (Hospitalization)
  Sender: MERCK SHARP & DOHME LLC
  Company Number: CN-009507513-2282640

PATIENT
  Age: 68 Year
  Sex: Female

DRUGS (2)
  1. INVANZ [Suspect]
     Active Substance: ERTAPENEM SODIUM
     Indication: Anti-infective therapy
     Route: 041
     Dates: start: 20250329, end: 20250409
  2. SODIUM CHLORIDE [Concomitant]
     Active Substance: SODIUM CHLORIDE
     Route: 041
     Dates: start: 20250329, end: 20250409

REACTIONS (3)
  - Initial insomnia [Recovering/Resolving]
  - Restlessness [Recovering/Resolving]
  - Disorganised speech [Recovering/Resolving]

NARRATIVE: CASE EVENT DATE: 20250408
